FAERS Safety Report 7032315-5 (Version None)
Quarter: 2010Q4

REPORT INFORMATION
  Report Type: 
  Country: None (occurrence: None)
  Receive Date: 20101007
  Receipt Date: 20100602
  Transmission Date: 20110411
  Serious: Yes (Hospitalization, Disabling)
  Sender: FDA-Public Use
  Company Number: US-BRISTOL-MYERS SQUIBB COMPANY-15141807

PATIENT
  Age: 56 Year
  Sex: Female
  Weight: 72 kg

DRUGS (12)
  1. CETUXIMAB [Suspect]
     Indication: NON-SMALL CELL LUNG CANCER METASTATIC
     Dosage: 27MAY10-27MAY10. INTERUPTED ON 01JUN10.
     Route: 042
     Dates: start: 20100527
  2. CISPLATIN [Suspect]
     Indication: NON-SMALL CELL LUNG CANCER METASTATIC
     Dosage: 27MAY10-27MAY10. INTERUPTED ON 01JUN10
     Route: 042
     Dates: start: 20100527
  3. GEMCITABINE [Suspect]
     Indication: NON-SMALL CELL LUNG CANCER METASTATIC
     Dosage: 27MAY10-27MAY10. INTERUPTED ON 01JUN10
     Route: 042
     Dates: start: 20100527
  4. ESTRATEST [Concomitant]
     Route: 048
  5. NICOTINE [Concomitant]
     Route: 062
  6. ADDERALL XR 10 [Concomitant]
  7. FLONASE [Concomitant]
     Route: 055
  8. XYZAL [Concomitant]
  9. BETACAROTENE [Concomitant]
     Dosage: 1 DF= 25000 UNITS
  10. VITAMIN E [Concomitant]
  11. ACIDOPHILUS [Concomitant]
     Route: 048
  12. ZOMIG [Concomitant]
     Indication: MIGRAINE
     Route: 065

REACTIONS (1)
  - CEREBRAL ISCHAEMIA [None]
